FAERS Safety Report 16345429 (Version 1)
Quarter: 2019Q2

REPORT INFORMATION
  Report Type: Spontaneous
  Country: US (occurrence: US)
  Receive Date: 20190523
  Receipt Date: 20190523
  Transmission Date: 20190711
  Serious: Yes (Other)
  Sender: FDA-Public Use
  Company Number: US-ABBVIE-19K-163-2790623-00

PATIENT
  Age: 30 Year
  Sex: Male

DRUGS (1)
  1. HUMIRA [Suspect]
     Active Substance: ADALIMUMAB
     Indication: CROHN^S DISEASE
     Route: 058
     Dates: end: 201808

REACTIONS (4)
  - Tracheostomy [Unknown]
  - Malaise [Unknown]
  - Musculoskeletal disorder [Unknown]
  - Acute flaccid myelitis [Unknown]

NARRATIVE: CASE EVENT DATE: 201808
